FAERS Safety Report 8116611-6 (Version None)
Quarter: 2012Q1

REPORT INFORMATION
  Report Type: 
  Country: None (occurrence: None)
  Receive Date: 20120206
  Receipt Date: 20120123
  Transmission Date: 20120608
  Serious: Yes (Other)
  Sender: FDA-Public Use
  Company Number: PHHY2012PL003995

PATIENT
  Age: 24 Year
  Sex: Female

DRUGS (10)
  1. AZULFIDINE [Concomitant]
     Indication: PSORIASIS
  2. ETANERCEPT [Concomitant]
     Dosage: 50 MG, TWICE WEEKLY
     Route: 058
  3. CYCLOSPORINE [Suspect]
     Indication: PSORIASIS
     Dates: start: 20030101
  4. METHOTREXATE [Concomitant]
     Indication: PSORIASIS
  5. SORIATANE [Concomitant]
     Indication: PSORIASIS
  6. METHOTREXATE [Concomitant]
     Dosage: 15 MG, UNK
     Route: 058
  7. USTEKINUMAB [Concomitant]
     Dates: start: 20100801
  8. ETANERCEPT [Concomitant]
     Dosage: 50 MG, ONCE WEEKLY
     Route: 058
  9. INFLIXIMAB [Concomitant]
     Dosage: 400 MG, UNK
     Route: 042
  10. ADALIMUMAB [Concomitant]

REACTIONS (15)
  - ARTHRALGIA [None]
  - URINARY TRACT INFECTION [None]
  - ASTHENIA [None]
  - DRUG RESISTANCE [None]
  - GENERAL PHYSICAL HEALTH DETERIORATION [None]
  - OEDEMA PERIPHERAL [None]
  - COLITIS ULCERATIVE [None]
  - PSORIATIC ARTHROPATHY [None]
  - HYPERKERATOSIS [None]
  - DRUG INEFFECTIVE [None]
  - SKIN LESION [None]
  - LEUKOPENIA [None]
  - GASTROINTESTINAL HAEMORRHAGE [None]
  - BODY TEMPERATURE INCREASED [None]
  - DISEASE PROGRESSION [None]
